FAERS Safety Report 7383867-7 (Version None)
Quarter: 2011Q1

REPORT INFORMATION
  Report Type: 
  Country: None (occurrence: None)
  Receive Date: 20110322
  Receipt Date: 20110307
  Transmission Date: 20110831
  Serious: Yes (Other)
  Sender: FDA-Public Use
  Company Number: AUR-APL-2011-00915

PATIENT
  Age: 60 Year
  Sex: Male

DRUGS (4)
  1. ROSUVASTATIN [Suspect]
     Dosage: 2.5 MG, QOD
  2. SIMVASTATIN [Suspect]
     Dosage: 20 MG, DAILY
  3. FLUVASTATIN [Suspect]
     Dosage: 80 MG, DAILY
  4. ROSUVASTATIN [Suspect]
     Dosage: 2.5 MG, DAILY

REACTIONS (2)
  - BLOOD CREATINE PHOSPHOKINASE INCREASED [None]
  - POLYNEUROPATHY [None]
